FAERS Safety Report 20029792 (Version 1)
Quarter: 2021Q4

REPORT INFORMATION
  Report Type: Report from Study
  Country: CN (occurrence: CN)
  Receive Date: 20211103
  Receipt Date: 20211103
  Transmission Date: 20220303
  Serious: Yes (Death, Other)
  Sender: FDA-Public Use
  Company Number: CN-PFIZER INC-202101484048

PATIENT
  Age: 29 Year
  Sex: Female

DRUGS (5)
  1. CYTARABINE [Suspect]
     Active Substance: CYTARABINE
     Indication: Acute myeloid leukaemia
     Dosage: 2000 MG/M2, 1X/DAY (D1-D5)
     Route: 041
  2. CLADRIBINE [Suspect]
     Active Substance: CLADRIBINE
     Indication: Acute myeloid leukaemia
     Dosage: 5 MG/M2 (D1-D5)
     Route: 041
  3. GRANULOCYTE COLONY-STIMULATING FACTOR NOS [Suspect]
     Active Substance: GRANULOCYTE COLONY-STIMULATING FACTOR NOS
     Indication: Acute myeloid leukaemia
     Dosage: 300 UG, 1X/DAY (D0-D5)
     Route: 058
  4. SODIUM BICARBONATE [Concomitant]
     Active Substance: SODIUM BICARBONATE
  5. CETYLPYRIDINIUM CHLORIDE [Concomitant]
     Active Substance: CETYLPYRIDINIUM CHLORIDE

REACTIONS (4)
  - Respiratory failure [Fatal]
  - Pneumonia [Unknown]
  - White blood cell count decreased [Unknown]
  - Platelet count decreased [Unknown]
